FAERS Safety Report 5519245-2 (Version None)
Quarter: 2007Q4

REPORT INFORMATION
  Report Type: 
  Country: None (occurrence: None)
  Receive Date: 20071116
  Receipt Date: 20071106
  Transmission Date: 20080405
  Serious: Yes (Other)
  Sender: FDA-Public Use
  Company Number: GB-KINGPHARMUSA00001-K200701437

PATIENT

DRUGS (1)
  1. ALTACE [Suspect]
     Indication: HYPERTENSION

REACTIONS (4)
  - CUTANEOUS LUPUS ERYTHEMATOSUS [None]
  - GRANULOMA [None]
  - LICHENIFICATION [None]
  - LYMPHOCYTIC INFILTRATION [None]
